FAERS Safety Report 21464098 (Version 1)
Quarter: 2022Q4

REPORT INFORMATION
  Report Type: Spontaneous
  Country: BF (occurrence: BF)
  Receive Date: 20221017
  Receipt Date: 20221017
  Transmission Date: 20230113
  Serious: Yes (Death, Other)
  Sender: FDA-Public Use
  Company Number: BF-NOVARTISPH-NVSC2022BF232479

PATIENT
  Age: 22 Year
  Sex: Male

DRUGS (1)
  1. GLIVEC [Suspect]
     Active Substance: IMATINIB MESYLATE
     Indication: Chronic myeloid leukaemia
     Dosage: 100 MG, QD (100 MG X 6 PER DAY)
     Route: 065
     Dates: start: 20211126

REACTIONS (6)
  - Cytopenia [Fatal]
  - Cardiac arrest [Fatal]
  - Chest pain [Fatal]
  - Dyspnoea [Fatal]
  - Cough [Fatal]
  - Oxygen saturation decreased [Fatal]

NARRATIVE: CASE EVENT DATE: 20220401
